FAERS Safety Report 6933591-7 (Version None)
Quarter: 2010Q3

REPORT INFORMATION
  Report Type: 
  Country: None (occurrence: None)
  Receive Date: 20100820
  Receipt Date: 20100809
  Transmission Date: 20110219
  Serious: Yes (Death)
  Sender: FDA-Public Use
  Company Number: DE-JNJFOC-20100803986

PATIENT
  Sex: Female

DRUGS (2)
  1. ABCIXIMAB [Suspect]
     Indication: MYOCARDIAL INFARCTION
     Route: 042
  2. ABCIXIMAB [Suspect]
     Route: 042

REACTIONS (1)
  - VENTRICULAR SEPTAL DEFECT [None]
